FAERS Safety Report 10761367 (Version 1)
Quarter: 2015Q1

REPORT INFORMATION
  Report Type: Spontaneous
  Country: US (occurrence: None)
  Receive Date: 20150203
  Receipt Date: 20150203
  Transmission Date: 20150721
  Serious: Yes (Hospitalization)
  Sender: FDA-Public Use
  Company Number: None

PATIENT
  Age: 64 Year
  Sex: Male
  Weight: 93.9 kg

DRUGS (1)
  1. SIMVASTATIN. [Suspect]
     Active Substance: SIMVASTATIN
     Indication: HYPERLIPIDAEMIA
     Route: 048
     Dates: start: 20090911, end: 20140819

REACTIONS (4)
  - Fatigue [None]
  - Renal failure [None]
  - Rhabdomyolysis [None]
  - Pneumonia [None]

NARRATIVE: CASE EVENT DATE: 20140819
